FAERS Safety Report 25770575 (Version 2)
Quarter: 2025Q4

REPORT INFORMATION
  Report Type: Report from Study
  Country: CN (occurrence: CN)
  Receive Date: 20250908
  Receipt Date: 20251006
  Transmission Date: 20260117
  Serious: Yes (Hospitalization)
  Sender: ROCHE
  Company Number: CN-ROCHE-10000334469

PATIENT
  Age: 42 Year
  Sex: Male

DRUGS (2)
  1. BEVACIZUMAB [Suspect]
     Active Substance: BEVACIZUMAB
     Indication: Hepatic cancer
     Dosage: 100MG/VIAL
     Route: 042
     Dates: start: 20250314
  2. ATEZOLIZUMAB [Suspect]
     Active Substance: ATEZOLIZUMAB
     Indication: Hepatic cancer
     Dosage: 1200MG/20ML
     Route: 042
     Dates: start: 20250314

REACTIONS (6)
  - Cough [Recovering/Resolving]
  - Epistaxis [Recovered/Resolved]
  - Jaundice [Unknown]
  - Hepatic function abnormal [Unknown]
  - Alpha 1 foetoprotein increased [Unknown]
  - Blood bilirubin increased [Unknown]

NARRATIVE: CASE EVENT DATE: 20250827
